FAERS Safety Report 4454347-3 (Version None)
Quarter: 2004Q3

REPORT INFORMATION
  Report Type: 
  Country: None (occurrence: None)
  Receive Date: 20040826
  Receipt Date: 20040602
  Transmission Date: 20050211
  Serious: No
  Sender: FDA-Public Use
  Company Number: WAES 0406USA00213

PATIENT
  Age: 40 Year
  Sex: Male

DRUGS (2)
  1. ZETIA [Suspect]
     Dosage: 10 MG/ DAILY/ PO
     Route: 048
  2. CRESTOR [Concomitant]

REACTIONS (1)
  - HEPATIC ENZYME INCREASED [None]
